FAERS Safety Report 24852861 (Version 3)
Quarter: 2025Q1

REPORT INFORMATION
  Report Type: Spontaneous
  Country: CA (occurrence: CA)
  Receive Date: 20250116
  Receipt Date: 20250320
  Transmission Date: 20250409
  Serious: Yes (Other)
  Sender: PFIZER
  Company Number: CA-PFIZER INC-202500010062

PATIENT
  Age: 48 Year
  Sex: Female

DRUGS (2)
  1. VELSIPITY [Suspect]
     Active Substance: ETRASIMOD ARGININE
     Indication: Colitis ulcerative
     Dosage: 2 MG, 1X/DAY
     Route: 048
     Dates: start: 20241017
  2. MESALAMINE [Concomitant]
     Active Substance: MESALAMINE
     Dates: start: 2022

REACTIONS (6)
  - Appendix disorder [Unknown]
  - Gastrointestinal inflammation [Unknown]
  - Carpal tunnel syndrome [Unknown]
  - Trigger finger [Unknown]
  - Trigger finger [Unknown]
  - Weight decreased [Unknown]

NARRATIVE: CASE EVENT DATE: 20240101
